FAERS Safety Report 13625720 (Version 2)
Quarter: 2017Q2

REPORT INFORMATION
  Report Type: Spontaneous
  Country: US (occurrence: US)
  Receive Date: 20170607
  Receipt Date: 20170630
  Transmission Date: 20170830
  Serious: No
  Sender: FDA-Public Use
  Company Number: US-JNJFOC-20170504241

PATIENT
  Age: 34 Year
  Sex: Male

DRUGS (2)
  1. RISPERDAL CONSTA [Suspect]
     Active Substance: RISPERIDONE
     Indication: PRODUCT USED FOR UNKNOWN INDICATION
     Route: 058
  2. RISPERIDONE. [Concomitant]
     Active Substance: RISPERIDONE
     Route: 065

REACTIONS (4)
  - Off label use [Unknown]
  - Drug dose omission [Unknown]
  - Incorrect route of drug administration [Unknown]
  - Device occlusion [Unknown]

NARRATIVE: CASE EVENT DATE: 20170503
